FAERS Safety Report 6879929-0 (Version None)
Quarter: 2010Q3

REPORT INFORMATION
  Report Type: 
  Country: None (occurrence: None)
  Receive Date: 20100728
  Receipt Date: 20100720
  Transmission Date: 20110219
  Serious: Yes (Other)
  Sender: FDA-Public Use
  Company Number: US-JNJCH-2003000735

PATIENT
  Age: 41 Year
  Sex: Female

DRUGS (4)
  1. BENADRYL INJECTABLE [Suspect]
     Indication: THROAT TIGHTNESS
     Dosage: DAILY DOSE:50MG-FREQ:ONCE
     Route: 042
  2. BENADRYL [Suspect]
     Indication: PRURITUS GENERALISED
  3. BENADRYL [Suspect]
     Indication: RASH
     Dosage: TEXT:UNKNOWN-FREQ:UNKNOWN
     Route: 048
  4. BENADRYL [Suspect]
     Indication: SLEEP DISORDER

REACTIONS (3)
  - PRURITUS [None]
  - RASH [None]
  - THROAT TIGHTNESS [None]
